FAERS Safety Report 24880632 (Version 2)
Quarter: 2025Q3

REPORT INFORMATION
  Report Type: Spontaneous
  Country: EU (occurrence: EU)
  Receive Date: 20250123
  Receipt Date: 20250809
  Transmission Date: 20251020
  Serious: Yes (Life-Threatening, Other)
  Sender: ALEXION PHARMACEUTICALS
  Company Number: None

PATIENT
  Age: 55 Year
  Sex: Male
  Weight: 90 kg

DRUGS (22)
  1. ESOMEPRAZOLE [Suspect]
     Active Substance: ESOMEPRAZOLE
     Indication: Product used for unknown indication
     Dosage: 40 MILLIGRAM, 1/DAY
  2. TRAMADOL HYDROCHLORIDE [Suspect]
     Active Substance: TRAMADOL HYDROCHLORIDE
     Indication: Pain
     Dosage: 150 MILLIGRAM, 1/DAY
  3. BACLOFEN [Suspect]
     Active Substance: BACLOFEN
     Indication: Multiple system atrophy
     Dosage: 90 MILLIGRAM, 1/DAY
  4. BACLOFEN [Suspect]
     Active Substance: BACLOFEN
  5. SINEMET [Suspect]
     Active Substance: CARBIDOPA\LEVODOPA
     Indication: Multiple system atrophy
     Dosage: 10 DOSAGE FORM, 1/DAY
  6. SINEMET [Suspect]
     Active Substance: CARBIDOPA\LEVODOPA
  7. HYDROCHLOROTHIAZIDE\TELMISARTAN [Suspect]
     Active Substance: HYDROCHLOROTHIAZIDE\TELMISARTAN
     Indication: Hypertension
     Dosage: 1 DOSAGE FORM, 1/DAY
  8. HYDROCHLOROTHIAZIDE\TELMISARTAN [Suspect]
     Active Substance: HYDROCHLOROTHIAZIDE\TELMISARTAN
  9. DOLIPRANE [Suspect]
     Active Substance: ACETAMINOPHEN
     Indication: Pain
     Dosage: 3 GRAM, 1/DAY
  10. DOLIPRANE [Suspect]
     Active Substance: ACETAMINOPHEN
  11. RIVOTRIL [Suspect]
     Active Substance: CLONAZEPAM
     Indication: Multiple system atrophy
     Dosage: 15 DROP, 1/DAY
  12. RIVOTRIL [Suspect]
     Active Substance: CLONAZEPAM
  13. ALPRAZOLAM [Suspect]
     Active Substance: ALPRAZOLAM
     Indication: Depression
     Dosage: 0.5 MILLIGRAM, 1/DAY
     Dates: start: 2023
  14. ALPRAZOLAM [Suspect]
     Active Substance: ALPRAZOLAM
  15. ZOPICLONE [Suspect]
     Active Substance: ZOPICLONE
     Indication: Depression
     Dosage: 11.25 MILLIGRAM, 1/DAY
     Dates: start: 2023
  16. ZOPICLONE [Suspect]
     Active Substance: ZOPICLONE
  17. AKINETON [Suspect]
     Active Substance: BIPERIDEN HYDROCHLORIDE
     Indication: Multiple system atrophy
     Dosage: 4 MILLIGRAM, 1/DAY
  18. AKINETON [Suspect]
     Active Substance: BIPERIDEN HYDROCHLORIDE
  19. ALFUZOSIN HYDROCHLORIDE [Suspect]
     Active Substance: ALFUZOSIN HYDROCHLORIDE
     Indication: Benign prostatic hyperplasia
     Dosage: 10 MILLIGRAM, 1/DAY
  20. MIRTAZAPINE [Suspect]
     Active Substance: MIRTAZAPINE
     Indication: Depression
     Dosage: 15 MILLIGRAM, 1/DAY
     Dates: start: 2023
  21. MIRTAZAPINE [Suspect]
     Active Substance: MIRTAZAPINE
  22. DULOXETINE HYDROCHLORIDE [Suspect]
     Active Substance: DULOXETINE HYDROCHLORIDE
     Indication: Depression
     Dosage: 60 MILLIGRAM, 1/DAY
     Dates: start: 2023

REACTIONS (1)
  - Suicidal ideation [Not Recovered/Not Resolved]

NARRATIVE: CASE EVENT DATE: 20241127
